FAERS Safety Report 9263659 (Version 3)
Quarter: 2014Q4

REPORT INFORMATION
  Report Type: Spontaneous
  Country: PR (occurrence: US)
  Receive Date: 20130430
  Receipt Date: 20141023
  Transmission Date: 20150529
  Serious: Yes (Other)
  Sender: FDA-Public Use
  Company Number: PR-PFIZER INC-2013131008

PATIENT
  Age: 74 Year
  Sex: Female

DRUGS (8)
  1. AMIODARONE [Suspect]
     Active Substance: AMIODARONE
     Dosage: 800 MG IV LOADING DOSE
     Route: 042
  2. AMIODARONE HCL [Suspect]
     Active Substance: AMIODARONE HYDROCHLORIDE
     Dosage: 200 MG, EVERY 12HRS
     Route: 048
  3. ENALAPRIL [Concomitant]
     Active Substance: ENALAPRIL
     Dosage: 10 MG, UNK
  4. COUMADIN [Concomitant]
     Active Substance: WARFARIN SODIUM
     Dosage: 5 MG, DAILY
  5. SIMVASTATIN. [Concomitant]
     Active Substance: SIMVASTATIN
     Dosage: 20 MG, UNK
  6. LEVOTHYROXINE [Concomitant]
     Active Substance: LEVOTHYROXINE
     Dosage: 25 UG, UNK
  7. LOVENOX [Concomitant]
     Active Substance: ENOXAPARIN SODIUM
     Dosage: 60 MG, Q12HRS
     Route: 058
  8. DILTIAZEM [Concomitant]
     Active Substance: DILTIAZEM
     Route: 041

REACTIONS (1)
  - Hyponatraemia [Recovered/Resolved]
